FAERS Safety Report 19362250 (Version 1)
Quarter: 2021Q2

REPORT INFORMATION
  Report Type: Spontaneous
  Country: US (occurrence: US)
  Receive Date: 20210603
  Receipt Date: 20210603
  Transmission Date: 20210717
  Serious: Yes (Other)
  Sender: FDA-Public Use
  Company Number: US-BEH-2021132307

PATIENT
  Age: 62 Year
  Sex: Female

DRUGS (2)
  1. ALBUMIN HUMAN (INN) [Suspect]
     Active Substance: ALBUMIN HUMAN
     Indication: PLASMAPHERESIS
     Route: 065
  2. SODIUM CAPRYLATE. [Suspect]
     Active Substance: SODIUM CAPRYLATE
     Indication: PLASMAPHERESIS
     Route: 065

REACTIONS (11)
  - Restlessness [Recovered/Resolved]
  - Nausea [Recovered/Resolved]
  - Paraesthesia [Recovered/Resolved]
  - Burning sensation [Recovered/Resolved]
  - Rash erythematous [Recovered/Resolved]
  - Abdominal pain [Recovered/Resolved]
  - Anxiety [Recovered/Resolved]
  - Pruritus [Recovered/Resolved]
  - Type I hypersensitivity [Recovered/Resolved]
  - Hypoaesthesia [Recovered/Resolved]
  - Urticaria [Recovered/Resolved]
